FAERS Safety Report 10111115 (Version 2)
Quarter: 2014Q4

REPORT INFORMATION
  Report Type: Spontaneous
  Country: US (occurrence: None)
  Receive Date: 20140421
  Receipt Date: 20141020
  Transmission Date: 20150528
  Serious: No
  Sender: FDA-Public Use
  Company Number: AEGR000260

PATIENT
  Age: 65 Year
  Sex: Male
  Weight: 78 kg

DRUGS (1)
  1. JUXTAPID [Suspect]
     Active Substance: LOMITAPIDE MESYLATE
     Indication: TYPE IIA HYPERLIPIDAEMIA
     Route: 048
     Dates: start: 20131031, end: 20140731

REACTIONS (8)
  - Influenza [None]
  - Hunger [None]
  - Depression [None]
  - Hostility [None]
  - Malaise [None]
  - Weight decreased [None]
  - Mood altered [None]
  - Agitation [None]
